FAERS Safety Report 5276894-7 (Version None)
Quarter: 2007Q1

REPORT INFORMATION
  Report Type: 
  Country: None (occurrence: None)
  Receive Date: 20070321
  Receipt Date: 20070314
  Transmission Date: 20070707
  Serious: Yes (Death)
  Sender: FDA-Public Use
  Company Number: 163-21880-07011202

PATIENT
  Age: 62 Year
  Sex: Male

DRUGS (6)
  1. REVLIMID [Suspect]
     Indication: CHRONIC LYMPHOCYTIC LEUKAEMIA
     Dosage: 25 MG, 1 IN 1 D, ORAL
     Route: 048
     Dates: start: 20061215, end: 20061218
  2. REVLIMID [Suspect]
     Indication: LEUKAEMIA PLASMACYTIC
     Dosage: 25 MG, 1 IN 1 D, ORAL
     Route: 048
     Dates: start: 20061215, end: 20061218
  3. REVLIMID [Suspect]
     Indication: PANCYTOPENIA
     Dosage: 25 MG, 1 IN 1 D, ORAL
     Route: 048
     Dates: start: 20061215, end: 20061218
  4. ADRIAMYCIN PFS [Concomitant]
  5. VINCRISTINE [Concomitant]
  6. CYTOXAN [Concomitant]

REACTIONS (3)
  - DISEASE PROGRESSION [None]
  - INFECTION [None]
  - SEPSIS [None]
